FAERS Safety Report 6807812-5 (Version None)
Quarter: 2010Q2

REPORT INFORMATION
  Report Type: 
  Country: None (occurrence: None)
  Receive Date: 20100629
  Receipt Date: 20090108
  Transmission Date: 20101027
  Serious: No
  Sender: FDA-Public Use
  Company Number: US-PFIZER INC-2009155871

PATIENT
  Sex: Female

DRUGS (2)
  1. SPIRONOLACTONE [Suspect]
     Indication: ALOPECIA
     Dates: start: 20081101
  2. KEPPRA [Concomitant]
     Indication: CONVULSION
     Dosage: UNK
     Dates: start: 20030501

REACTIONS (5)
  - ALOPECIA [None]
  - DRY SKIN [None]
  - LIP DRY [None]
  - MASTOPTOSIS [None]
  - OFF LABEL USE [None]
